FAERS Safety Report 11063146 (Version 1)
Quarter: 2015Q2

REPORT INFORMATION
  Report Type: Spontaneous
  Country: JP (occurrence: JP)
  Receive Date: 20150424
  Receipt Date: 20150424
  Transmission Date: 20150821
  Serious: Yes (Death, Other)
  Sender: FDA-Public Use
  Company Number: JP-PFIZER INC-2015136070

PATIENT

DRUGS (1)
  1. ZITHROMAC [Suspect]
     Active Substance: AZITHROMYCIN DIHYDRATE
     Indication: SINOBRONCHITIS
     Dosage: 250 MG, 2X/WEEK
     Route: 048

REACTIONS (3)
  - Colon cancer [Fatal]
  - Off label use [Unknown]
  - Therapeutic response unexpected [Unknown]
